FAERS Safety Report 5467191-5 (Version None)
Quarter: 2007Q3

REPORT INFORMATION
  Report Type: 
  Country: None (occurrence: None)
  Receive Date: 20070925
  Receipt Date: 20070913
  Transmission Date: 20080115
  Serious: Yes (Other)
  Sender: FDA-Public Use
  Company Number: CA-GENENTECH-247892

PATIENT
  Age: 74 Year
  Sex: Male

DRUGS (2)
  1. BEVACIZUMAB [Suspect]
     Indication: HEPATIC NEOPLASM MALIGNANT
     Dosage: 7.5 MG/KG, Q2W
     Dates: start: 20051201
  2. AMLODIPINE [Concomitant]
     Indication: HYPERTENSION

REACTIONS (2)
  - PROTEINURIA [None]
  - THROMBOTIC MICROANGIOPATHY [None]
